FAERS Safety Report 8553330-6 (Version None)
Quarter: 2012Q3

REPORT INFORMATION
  Report Type: 
  Country: None (occurrence: None)
  Receive Date: 20120731
  Receipt Date: 20120725
  Transmission Date: 20120928
  Serious: Yes (Other)
  Sender: FDA-Public Use
  Company Number: AT-ROCHE-1082815

PATIENT
  Sex: Female
  Weight: 72 kg

DRUGS (13)
  1. NOVALGIN [Suspect]
     Indication: PAIN
     Dosage: 3X40
     Route: 048
  2. NEURONTIN [Concomitant]
     Route: 048
  3. PASPERTIN [Concomitant]
  4. TAXOL [Suspect]
     Indication: OVARIAN CANCER
     Route: 042
     Dates: start: 20120315, end: 20120614
  5. TRAZODONE HCL [Concomitant]
     Indication: DEPRESSION
     Route: 048
  6. ZOMETA [Concomitant]
  7. AVASTIN [Suspect]
     Indication: OVARIAN CANCER
     Route: 042
     Dates: start: 20120315, end: 20120601
  8. RAMIPRIL [Concomitant]
     Indication: HYPERTENSION
     Route: 048
  9. MAXI-KALZ [Concomitant]
  10. CARVEDILOL [Concomitant]
     Indication: HYPERTENSION
     Route: 048
  11. LEVOTHYROXINE SODIUM [Concomitant]
  12. KYTRIL [Concomitant]
  13. PANTOPRAZOLE SODIUM [Concomitant]

REACTIONS (1)
  - ENCEPHALITIS [None]
